FAERS Safety Report 24216991 (Version 1)
Quarter: 2024Q3

REPORT INFORMATION
  Report Type: Report from Study
  Country: CN (occurrence: CN)
  Receive Date: 20240816
  Receipt Date: 20240816
  Transmission Date: 20241017
  Serious: Yes (Death, Hospitalization, Other)
  Sender: ACCORD
  Company Number: CN-Accord-440642

PATIENT

DRUGS (3)
  1. ETOPOSIDE [Suspect]
     Active Substance: ETOPOSIDE
     Indication: Lymphoma
     Dosage: D1 TO D3 (0.1 G/M2)QD
  2. CYTARABINE [Suspect]
     Active Substance: CYTARABINE
     Indication: Lymphoma
     Dosage: D1 TO D3 ,0.5 G/M2
  3. GRANULOCYTE COLONY-STIMULATING FACTOR NOS [Suspect]
     Active Substance: GRANULOCYTE COLONY-STIMULATING FACTOR NOS
     Indication: Lymphoma
     Dosage: D5 UNTIL THE LAST DAY

REACTIONS (1)
  - Sepsis [Fatal]
